FAERS Safety Report 19264152 (Version 1)
Quarter: 2021Q2

REPORT INFORMATION
  Report Type: Spontaneous
  Country: SE (occurrence: SE)
  Receive Date: 20210517
  Receipt Date: 20210517
  Transmission Date: 20210717
  Serious: Yes (Other)
  Sender: FDA-Public Use
  Company Number: SE-TERSERA THERAPEUTICS LLC-2021TRS002243

PATIENT

DRUGS (1)
  1. XERMELO [Suspect]
     Active Substance: TELOTRISTAT ETHYL
     Indication: DIARRHOEA
     Dosage: 250 MG, TID
     Route: 048
     Dates: start: 20210303, end: 20210323

REACTIONS (1)
  - Hypomania [Recovered/Resolved]

NARRATIVE: CASE EVENT DATE: 20210310
